FAERS Safety Report 21525593 (Version 1)
Quarter: 2022Q4

REPORT INFORMATION
  Report Type: Spontaneous
  Country: US (occurrence: US)
  Receive Date: 20221031
  Receipt Date: 20221031
  Transmission Date: 20230112
  Serious: No
  Sender: FDA-Public Use
  Company Number: US-BRISTOL-MYERS SQUIBB COMPANY-2022-127805

PATIENT
  Age: 83 Year
  Sex: Female

DRUGS (1)
  1. REVLIMID [Suspect]
     Active Substance: LENALIDOMIDE
     Indication: Plasma cell myeloma
     Route: 048
     Dates: start: 20220819, end: 20220823

REACTIONS (4)
  - Headache [Unknown]
  - Pruritus [Unknown]
  - Rash [Unknown]
  - Eye swelling [Unknown]

NARRATIVE: CASE EVENT DATE: 20220819
